FAERS Safety Report 9956284 (Version 1)
Quarter: 2014Q1

REPORT INFORMATION
  Report Type: Report from Study
  Country: US (occurrence: US)
  Receive Date: 20140304
  Receipt Date: 20140304
  Transmission Date: 20141002
  Serious: No
  Sender: FDA-Public Use
  Company Number: US-ABBVIE-13P-163-1085066-00

PATIENT
  Age: 20 Year
  Sex: Male
  Weight: 63.11 kg

DRUGS (4)
  1. HUMIRA [Suspect]
     Indication: CROHN^S DISEASE
     Dosage: INITIAL DOSE
     Dates: start: 201201, end: 201201
  2. HUMIRA [Suspect]
     Dosage: TWO WEEKS AFTER INITIAL 160 MG DOSE
     Dates: start: 2012, end: 2012
  3. HUMIRA [Suspect]
     Dosage: FOUR WEEKS AFTER INITIAL 160 MG DOSE
     Dates: start: 2012, end: 201304
  4. CIMZIA [Concomitant]
     Indication: CROHN^S DISEASE
     Dates: start: 2013

REACTIONS (2)
  - Gastrointestinal ulcer [Unknown]
  - Drug ineffective [Not Recovered/Not Resolved]
